FAERS Safety Report 7373703-7 (Version None)
Quarter: 2011Q1

REPORT INFORMATION
  Report Type: 
  Country: None (occurrence: None)
  Receive Date: 20110325
  Receipt Date: 20110322
  Transmission Date: 20110831
  Serious: Yes (Other)
  Sender: FDA-Public Use
  Company Number: FR-CEPHALON-2010006506

PATIENT
  Sex: Female

DRUGS (5)
  1. SEROPRAM [Concomitant]
     Indication: DEPRESSION
  2. MODAFINIL [Suspect]
     Route: 048
     Dates: start: 20100118
  3. STILNOX [Concomitant]
     Indication: INSOMNIA
  4. MODAFINIL [Suspect]
     Route: 048
     Dates: start: 20091201
  5. LORAZEPAM [Concomitant]

REACTIONS (4)
  - OVERDOSE [None]
  - DRUG DEPENDENCE [None]
  - DRUG PRESCRIBING ERROR [None]
  - HYPERTENSION [None]
